FAERS Safety Report 7756275-4 (Version None)
Quarter: 2011Q3

REPORT INFORMATION
  Report Type: 
  Country: None (occurrence: None)
  Receive Date: 20110916
  Receipt Date: 20110907
  Transmission Date: 20111222
  Serious: Yes (Hospitalization)
  Sender: FDA-Public Use
  Company Number: US-JNJFOC-20110903008

PATIENT
  Sex: Male
  Weight: 115.67 kg

DRUGS (2)
  1. REMICADE [Suspect]
     Dosage: EVERY 6-8 WEEKS
     Route: 042
     Dates: start: 20110730
  2. REMICADE [Suspect]
     Indication: ANKYLOSING SPONDYLITIS
     Dosage: EVERY 6-8 WEEKS
     Route: 042
     Dates: start: 20000101, end: 20100317

REACTIONS (4)
  - IRITIS [None]
  - VERTIGO [None]
  - INTRAOCULAR PRESSURE INCREASED [None]
  - VISION BLURRED [None]
